FAERS Safety Report 19440268 (Version 1)
Quarter: 2021Q2

REPORT INFORMATION
  Report Type: Spontaneous
  Country: US (occurrence: US)
  Receive Date: 20210621
  Receipt Date: 20210621
  Transmission Date: 20210717
  Serious: Yes (Other)
  Sender: FDA-Public Use
  Company Number: US-ABBVIE-21K-163-3956355-00

PATIENT
  Age: 47 Year
  Sex: Male

DRUGS (1)
  1. HUMIRA [Suspect]
     Active Substance: ADALIMUMAB
     Indication: CROHN^S DISEASE
     Route: 058

REACTIONS (8)
  - Colorectostomy [Unknown]
  - Thrombosis mesenteric vessel [Unknown]
  - Device difficult to use [Recovered/Resolved]
  - Post procedural complication [Unknown]
  - Systemic lupus erythematosus [Unknown]
  - Benign prostatic hyperplasia [Unknown]
  - Weight decreased [Unknown]
  - Wrong technique in product usage process [Recovered/Resolved]

NARRATIVE: CASE EVENT DATE: 201205
